FAERS Safety Report 6390965-3 (Version None)
Quarter: 2009Q4

REPORT INFORMATION
  Report Type: 
  Country: None (occurrence: None)
  Receive Date: 20091001
  Receipt Date: 20090511
  Transmission Date: 20100525
  Serious: Yes (Other)
  Sender: FDA-Public Use
  Company Number: 192654USA

PATIENT
  Age: 74 Year
  Sex: Male

DRUGS (4)
  1. PIROXICAM [Suspect]
     Indication: INFLAMMATION
     Dosage: 20 MG (20 MG, 1 IN 1 D) ORAL
     Route: 048
     Dates: start: 20070101, end: 20090326
  2. DOXAZOSIN MESYLATE [Concomitant]
  3. ALLOPURINOL [Concomitant]
  4. LOVASTATIN [Concomitant]

REACTIONS (1)
  - CONVULSION [None]
